FAERS Safety Report 8189986-X (Version None)
Quarter: 2012Q1

REPORT INFORMATION
  Report Type: 
  Country: None (occurrence: None)
  Receive Date: 20120307
  Receipt Date: 20120227
  Transmission Date: 20120608
  Serious: Yes (Life-Threatening, Hospitalization)
  Sender: FDA-Public Use
  Company Number: ES-SANOFI-AVENTIS-2012SA013465

PATIENT
  Age: 75 Year
  Sex: Male

DRUGS (6)
  1. OMEPRAZOLE [Suspect]
     Indication: PROPHYLAXIS
     Route: 042
     Dates: start: 20110119, end: 20110125
  2. NOLOTIL [Suspect]
     Indication: PAIN
     Route: 042
     Dates: start: 20110120, end: 20110124
  3. ENOXAPARIN SODIUM [Suspect]
     Indication: PROPHYLAXIS
     Route: 058
     Dates: start: 20101216, end: 20110125
  4. PANTOPRAZOLE [Suspect]
     Indication: PROPHYLAXIS
     Route: 048
     Dates: start: 20101216, end: 20110119
  5. PRIMPERAN TAB [Suspect]
     Indication: VOMITING
     Route: 042
     Dates: start: 20101216, end: 20110128
  6. ACETAMINOPHEN [Suspect]
     Indication: ABDOMINAL PAIN UPPER
     Route: 048
     Dates: start: 20101216, end: 20110119

REACTIONS (3)
  - PANCYTOPENIA [None]
  - PNEUMONIA [None]
  - SEPTIC SHOCK [None]
